FAERS Safety Report 5750313-6 (Version None)
Quarter: 2008Q2

REPORT INFORMATION
  Report Type: 
  Country: None (occurrence: None)
  Receive Date: 20080521
  Receipt Date: 20080521
  Transmission Date: 20081010
  Serious: Yes (Hospitalization)
  Sender: FDA-Public Use
  Company Number: None

PATIENT
  Age: 59 Year
  Sex: Male
  Weight: 95.2554 kg

DRUGS (5)
  1. HUMIRA [Suspect]
     Indication: PSORIATIC ARTHROPATHY
     Dosage: 40 MG EVERY 2 WEEKS SQ
     Route: 058
     Dates: start: 20060207, end: 20080408
  2. MULTI-VITAMIN [Concomitant]
  3. FOLIC ACID [Concomitant]
  4. ACIOPHILIS [Concomitant]
  5. METHOTREXATE [Concomitant]

REACTIONS (3)
  - BONE LESION [None]
  - IMPAIRED HEALING [None]
  - OSTEOMYELITIS SALMONELLA [None]
